FAERS Safety Report 9096783 (Version 2)
Quarter: 2013Q2

REPORT INFORMATION
  Report Type: Spontaneous
  Country: JP (occurrence: JP)
  Receive Date: 20130211
  Receipt Date: 20130523
  Transmission Date: 20140414
  Serious: Yes (Other)
  Sender: FDA-Public Use
  Company Number: JP-OTSUKA-JP-2013-10286

PATIENT
  Age: 56 Year
  Sex: Male

DRUGS (3)
  1. PLETAAL [Suspect]
     Indication: ACUTE MYOCARDIAL INFARCTION
     Dosage: UNK
     Route: 048
  2. ASPIRIN [Suspect]
     Dosage: UNK
     Route: 048
  3. TICLOPIDINE HYDROCHLORIDE [Suspect]
     Dosage: UNK
     Route: 048

REACTIONS (2)
  - Gastrointestinal ulcer haemorrhage [Recovering/Resolving]
  - Thrombosis in device [Recovering/Resolving]
